FAERS Safety Report 9415494 (Version 2)
Quarter: 2013Q4

REPORT INFORMATION
  Report Type: Spontaneous
  Country: FR (occurrence: FR)
  Receive Date: 20130723
  Receipt Date: 20131011
  Transmission Date: 20140711
  Serious: Yes (Disabling)
  Sender: FDA-Public Use
  Company Number: FR-ROCHE-1251557

PATIENT
  Age: 76 Year
  Sex: Female

DRUGS (5)
  1. AVASTIN [Suspect]
     Indication: OVARIAN CANCER
     Route: 042
  2. TAXOL [Suspect]
     Indication: OVARIAN CANCER
     Route: 065
     Dates: start: 20070117, end: 20070430
  3. TAXOL [Suspect]
     Route: 065
     Dates: start: 200809
  4. TAXOL [Suspect]
     Route: 042
     Dates: start: 201301
  5. CARBOPLATIN [Concomitant]
     Route: 065
     Dates: start: 20070117, end: 20070430

REACTIONS (1)
  - Macular oedema [Recovered/Resolved]
